FAERS Safety Report 7038687-X (Version None)
Quarter: 2010Q4

REPORT INFORMATION
  Report Type: 
  Country: None (occurrence: None)
  Receive Date: 20101011
  Receipt Date: 20101004
  Transmission Date: 20110411
  Serious: Yes (Other)
  Sender: FDA-Public Use
  Company Number: US-AMGEN-QUU443178

PATIENT
  Sex: Male

DRUGS (1)
  1. NPLATE [Suspect]
     Indication: IDIOPATHIC THROMBOCYTOPENIC PURPURA
     Dates: start: 20090824, end: 20091012

REACTIONS (3)
  - ANAEMIA MACROCYTIC [None]
  - BONE MARROW DISORDER [None]
  - MARROW HYPERPLASIA [None]
